FAERS Safety Report 5418410-2 (Version None)
Quarter: 2007Q3

REPORT INFORMATION
  Report Type: 
  Country: None (occurrence: None)
  Receive Date: 20070817
  Receipt Date: 20070803
  Transmission Date: 20080115
  Serious: Yes (Other)
  Sender: FDA-Public Use
  Company Number: GB-GENENTECH-246145

PATIENT
  Sex: Male

DRUGS (7)
  1. BEVACIZUMAB [Suspect]
     Indication: COLON CANCER
     Dosage: 600 MG, Q3W
     Route: 042
     Dates: start: 20061220
  2. CAPECITABINE [Suspect]
     Indication: COLON CANCER
     Dosage: 2500 MG, BID
     Route: 048
     Dates: start: 20061220
  3. SIMVASTATIN [Suspect]
     Indication: HYPERCHOLESTEROLAEMIA
     Dosage: 10 MG, UNK
     Route: 048
  4. ASPIRIN [Suspect]
     Indication: PROPHYLAXIS
     Dosage: 75 MG, UNK
     Route: 048
  5. DIGOXIN [Suspect]
     Indication: ATRIAL FIBRILLATION
     Dosage: 125 MG, UNK
     Route: 048
  6. CO-TENIDONE [Suspect]
     Indication: HYPERTENSION
     Route: 048
  7. ATENOLOL [Suspect]
     Indication: HYPERTENSION
     Dosage: 50 MG, UNK
     Route: 048

REACTIONS (1)
  - BLOOD CREATININE INCREASED [None]
